FAERS Safety Report 8190719-1 (Version None)
Quarter: 2012Q1

REPORT INFORMATION
  Report Type: 
  Country: None (occurrence: None)
  Receive Date: 20120307
  Receipt Date: 20120224
  Transmission Date: 20120608
  Serious: Yes (Hospitalization, Other)
  Sender: FDA-Public Use
  Company Number: US-ROCHE-1033306

PATIENT
  Sex: Male

DRUGS (3)
  1. PEGINTERFERON ALFA-2A [Suspect]
     Indication: HEPATITIS C
     Dates: start: 20111005
  2. BOCEPREVIR [Suspect]
     Indication: HEPATITIS C
     Dates: start: 20111102
  3. COPEGUS [Suspect]
     Indication: HEPATITIS C
     Dates: start: 20111005

REACTIONS (9)
  - INSOMNIA [None]
  - HIP ARTHROPLASTY [None]
  - SUBSTANCE USE [None]
  - DIARRHOEA [None]
  - TOXICOLOGIC TEST ABNORMAL [None]
  - WHITE BLOOD CELL COUNT DECREASED [None]
  - HYPERHIDROSIS [None]
  - THYROID FUNCTION TEST ABNORMAL [None]
  - CHILLS [None]
